FAERS Safety Report 6699981-5 (Version None)
Quarter: 2010Q2

REPORT INFORMATION
  Report Type: 
  Country: None (occurrence: None)
  Receive Date: 20100428
  Receipt Date: 20100421
  Transmission Date: 20101027
  Serious: Yes (Hospitalization)
  Sender: FDA-Public Use
  Company Number: PHHO2010ES05342

PATIENT
  Sex: Male
  Weight: 83 kg

DRUGS (3)
  1. TASIGNA [Suspect]
     Indication: GASTROINTESTINAL STROMAL TUMOUR
     Dosage: 800 MG
     Route: 048
     Dates: start: 20100311, end: 20100406
  2. RABEPRAZOLE SODIUM [Concomitant]
     Indication: PROPHYLAXIS
  3. FERROGRADUMET [Concomitant]
     Indication: ANAEMIA

REACTIONS (3)
  - CATHETERISATION CARDIAC [None]
  - CORONARY ARTERIAL STENT INSERTION [None]
  - MYOCARDIAL INFARCTION [None]
